FAERS Safety Report 7620482-1 (Version None)
Quarter: 2011Q3

REPORT INFORMATION
  Report Type: 
  Country: None (occurrence: None)
  Receive Date: 20110719
  Receipt Date: 20110715
  Transmission Date: 20111222
  Serious: Yes (Other)
  Sender: FDA-Public Use
  Company Number: JP-PFIZER INC-2011159983

PATIENT
  Age: 34 Year

DRUGS (1)
  1. GABAPENTIN [Suspect]
     Indication: ALLODYNIA
     Dosage: 1800 MG/DAY

REACTIONS (2)
  - NEUROLEPTIC MALIGNANT SYNDROME [None]
  - C-REACTIVE PROTEIN INCREASED [None]
